FAERS Safety Report 6651354-7 (Version None)
Quarter: 2010Q1

REPORT INFORMATION
  Report Type: 
  Country: None (occurrence: None)
  Receive Date: 20100325
  Receipt Date: 20100315
  Transmission Date: 20100710
  Serious: Yes (Hospitalization)
  Sender: FDA-Public Use
  Company Number: US-BRISTOL-MYERS SQUIBB COMPANY-15029416

PATIENT
  Age: 55 Year
  Sex: Female

DRUGS (6)
  1. CYCLOPHOSPHAMIDE [Suspect]
     Indication: BREAST CANCER STAGE IV
  2. DOXORUBICIN HCL [Suspect]
     Indication: BREAST CANCER STAGE IV
  3. PACLITAXEL [Suspect]
     Indication: OVARIAN CANCER
  4. CARBOPLATIN [Suspect]
     Indication: OVARIAN CANCER
  5. METHOTREXATE [Suspect]
     Indication: BREAST CANCER STAGE IV
  6. FLUOROURACIL [Suspect]
     Indication: BREAST CANCER STAGE IV

REACTIONS (1)
  - MYELODYSPLASTIC SYNDROME [None]
